FAERS Safety Report 8222139-5 (Version None)
Quarter: 2012Q1

REPORT INFORMATION
  Report Type: 
  Country: None (occurrence: None)
  Receive Date: 20120320
  Receipt Date: 20120314
  Transmission Date: 20120608
  Serious: Yes (Hospitalization, Other)
  Sender: FDA-Public Use
  Company Number: US-CELGENEUS-163-21880-12031832

PATIENT
  Sex: Male

DRUGS (18)
  1. CEFEPIME [Concomitant]
     Route: 065
  2. REVLIMID [Suspect]
     Dosage: 10 MILLIGRAM
     Route: 048
     Dates: start: 20120220, end: 20120311
  3. ENSURE PLUS [Concomitant]
     Dosage: 0.05-1.5 GRAM-KCAL/ML
     Route: 065
  4. TORADOL [Concomitant]
     Route: 065
  5. REVLIMID [Suspect]
     Dosage: 10 MILLIGRAM
     Route: 048
     Dates: start: 20111018
  6. REVLIMID [Suspect]
     Dosage: 10 MILLIGRAM
     Route: 048
     Dates: start: 20111221
  7. MARINOL [Concomitant]
     Dosage: 5 MILLIGRAM
     Route: 048
  8. DECITABINE [Suspect]
     Dosage: 20 MILLIGRAM/SQ. METER
     Route: 065
     Dates: start: 20111020, end: 20120224
  9. REVLIMID [Suspect]
     Dosage: 10 MILLIGRAM
     Route: 048
     Dates: start: 20111114
  10. ASPIRIN [Concomitant]
     Dosage: 81 MILLIGRAM
     Route: 065
  11. PROTONIX [Concomitant]
     Dosage: 40 MILLIGRAM
     Route: 048
  12. REVLIMID [Suspect]
     Dosage: 10 MILLIGRAM
     Route: 048
     Dates: start: 20120117
  13. HYDROXYUREA [Concomitant]
     Dosage: 500 MILLIGRAM
     Route: 065
  14. MIRTAZAPINE [Concomitant]
     Dosage: 30 MILLIGRAM
     Route: 048
  15. PLATELETS [Concomitant]
     Route: 041
  16. DECITABINE [Suspect]
     Dosage: 20 MILLIGRAM/SQ. METER
     Route: 065
     Dates: start: 20111018
  17. TRIAMCINOLONE ACETONIDE [Concomitant]
     Dosage: .1 PERCENT
     Route: 061
  18. ALLOPURINOL [Concomitant]
     Route: 065

REACTIONS (2)
  - ACUTE MYELOID LEUKAEMIA [None]
  - MYELODYSPLASTIC SYNDROME TRANSFORMATION [None]
